FAERS Safety Report 9435474 (Version 1)
Quarter: 2013Q3

REPORT INFORMATION
  Report Type: Spontaneous
  Country: US (occurrence: US)
  Receive Date: 20130801
  Receipt Date: 20130801
  Transmission Date: 20140515
  Serious: Yes (Death)
  Sender: FDA-Public Use
  Company Number: US-GLAXOSMITHKLINE-B0912533A

PATIENT
  Age: 66 Year
  Sex: Male

DRUGS (2)
  1. MELPHALAN [Suspect]
     Indication: POEMS SYNDROME
     Route: 065
  2. ALL TRANS RETINOIC ACID [Suspect]
     Indication: POEMS SYNDROME

REACTIONS (1)
  - Refractory anaemia with an excess of blasts [Fatal]
